FAERS Safety Report 8962435 (Version 1)
Quarter: 2012Q4

REPORT INFORMATION
  Report Type: Spontaneous
  Country: PT (occurrence: None)
  Receive Date: 20121206
  Receipt Date: 20121206
  Transmission Date: 20130627
  Serious: Yes (Death)
  Sender: FDA-Public Use
  Company Number: B0848992A

PATIENT
  Age: 32 Year
  Sex: Male

DRUGS (8)
  1. PAROXETINE HYDROCHLORIDE [Suspect]
     Indication: DRUG USE FOR UNKNOWN INDICATION
  2. QUETIAPINE [Suspect]
     Indication: DRUG USE FOR UNKNOWN INDICATION
  3. FLUOXETINE [Suspect]
     Indication: DRUG USE FOR UNKNOWN INDICATION
  4. OLANZAPINE [Suspect]
     Indication: DRUG USE FOR UNKNOWN INDICATION
  5. BROMAZEPAM [Suspect]
     Indication: DRUG USE FOR UNKNOWN INDICATION
  6. BROMAZEPAM [Suspect]
     Indication: DRUG USE FOR UNKNOWN INDICATION
  7. HALOPERIDOL [Suspect]
     Indication: DRUG USE FOR UNKNOWN INDICATION
  8. LORAZEPAM [Suspect]
     Indication: DRUG USE FOR UNKNOWN INDICATION

REACTIONS (6)
  - Mouth haemorrhage [None]
  - Visceral congestion [None]
  - Pulmonary oedema [None]
  - Toxicity to various agents [None]
  - Intentional overdose [None]
  - Completed suicide [None]
